FAERS Safety Report 8263633-0 (Version None)
Quarter: 2012Q2

REPORT INFORMATION
  Report Type: 
  Country: None (occurrence: None)
  Receive Date: 20120405
  Receipt Date: 20120326
  Transmission Date: 20120825
  Serious: Yes (Hospitalization)
  Sender: FDA-Public Use
  Company Number: DE-ABBOTT-12P-062-0895896-01

PATIENT
  Sex: Female

DRUGS (6)
  1. HUMIRA [Suspect]
     Dosage: (WEEK 2)
     Route: 058
  2. METHOTREXATE [Concomitant]
     Indication: CROHN'S DISEASE
     Dates: start: 20090804
  3. PANTOPRAZOLE SODIUM SESQUIHYDRATE [Concomitant]
     Indication: GASTRITIS EROSIVE
  4. HUMIRA [Suspect]
     Indication: CROHN'S DISEASE
     Dosage: (BASELINE)
     Route: 058
     Dates: start: 20090630, end: 20090630
  5. HUMIRA [Suspect]
     Route: 058
     Dates: end: 20091117
  6. 5-ASA/MESALAMINE [Concomitant]
     Indication: PRODUCT USED FOR UNKNOWN INDICATION

REACTIONS (1)
  - ILEAL STENOSIS [None]
